FAERS Safety Report 7197102-6 (Version None)
Quarter: 2010Q4

REPORT INFORMATION
  Report Type: 
  Country: None (occurrence: None)
  Receive Date: 20101224
  Receipt Date: 20101210
  Transmission Date: 20110411
  Serious: Yes (Other)
  Sender: FDA-Public Use
  Company Number: PHHY2010FR67127

PATIENT
  Sex: Female

DRUGS (11)
  1. GLEEVEC [Suspect]
     Indication: GASTROINTESTINAL STROMAL TUMOUR
     Dosage: 400 MG, DAILY
     Route: 048
     Dates: start: 20100529, end: 20100906
  2. GLEEVEC [Suspect]
     Dosage: 300 MG, DAILY
     Dates: start: 20100927, end: 20100930
  3. LANSOPRAZOLE [Concomitant]
  4. DIAMICRON [Concomitant]
  5. ENALAPRIL MALEATE [Concomitant]
  6. CRESTOR [Concomitant]
  7. MODURETIC 5-50 [Concomitant]
  8. LEVOTHYROX [Concomitant]
  9. PREVISCAN [Concomitant]
  10. SERC [Concomitant]
  11. TENORMIN [Concomitant]

REACTIONS (6)
  - CONJUNCTIVITIS [None]
  - MUCOSAL INFLAMMATION [None]
  - OEDEMA PERIPHERAL [None]
  - PALMAR-PLANTAR ERYTHRODYSAESTHESIA SYNDROME [None]
  - PERIORBITAL OEDEMA [None]
  - SKIN REACTION [None]
